FAERS Safety Report 8294531-4 (Version None)
Quarter: 2012Q2

REPORT INFORMATION
  Report Type: 
  Country: None (occurrence: None)
  Receive Date: 20120418
  Receipt Date: 20120409
  Transmission Date: 20120825
  Serious: Yes (Hospitalization)
  Sender: FDA-Public Use
  Company Number: US-NOVOPROD-349144

PATIENT
  Age: 76 Year
  Sex: Female
  Weight: 90.703 kg

DRUGS (3)
  1. LEVEMIR [Suspect]
     Dosage: 22 U, QD
     Route: 058
     Dates: start: 20120301
  2. COUMADIN [Concomitant]
     Indication: ANTITHROMBIN III DEFICIENCY
     Dosage: UNKNOWN
     Route: 065
  3. LEVEMIR [Suspect]
     Indication: TYPE 2 DIABETES MELLITUS
     Dosage: 10 U, QD
     Route: 058
     Dates: start: 20120101, end: 20120301

REACTIONS (2)
  - HIP FRACTURE [None]
  - CEREBROVASCULAR ACCIDENT [None]
